FAERS Safety Report 5008716-3 (Version None)
Quarter: 2006Q2

REPORT INFORMATION
  Report Type: 
  Country: None (occurrence: None)
  Receive Date: 20060517
  Receipt Date: 20060508
  Transmission Date: 20061013
  Serious: Yes (Other)
  Sender: FDA-Public Use
  Company Number: 224789

PATIENT

DRUGS (5)
  1. RITUXAN [Suspect]
     Indication: NON-HODGKIN'S LYMPHOMA
     Dosage: INTRAVENOUS
     Route: 042
  2. FLUDARABINE [Concomitant]
  3. MITOXANTRONE [Concomitant]
  4. DEXAMETHASONE [Concomitant]
  5. NEUPOGEN [Concomitant]

REACTIONS (1)
  - BREAST CANCER [None]
